FAERS Safety Report 5962537-3 (Version None)
Quarter: 2008Q4

REPORT INFORMATION
  Report Type: 
  Country: None (occurrence: None)
  Receive Date: 20081121
  Receipt Date: 20081111
  Transmission Date: 20090506
  Serious: Yes (Other)
  Sender: FDA-Public Use
  Company Number: IT-PFIZER INC-2008095657

PATIENT
  Age: 72 Year
  Sex: Male

DRUGS (6)
  1. PREGABALIN [Suspect]
  2. LOSARTAN POTASSIUM [Concomitant]
  3. CARVEDILOL [Concomitant]
  4. DIGOXIN [Concomitant]
  5. FUROSEMIDE [Concomitant]
  6. WARFARIN SODIUM [Concomitant]

REACTIONS (1)
  - CARDIAC FAILURE [None]
